FAERS Safety Report 6152965-8 (Version None)
Quarter: 2009Q2

REPORT INFORMATION
  Report Type: 
  Country: None (occurrence: None)
  Receive Date: 20090413
  Receipt Date: 20090402
  Transmission Date: 20091009
  Serious: Yes (Hospitalization, Other)
  Sender: FDA-Public Use
  Company Number: CA-JNJFOC-20090401693

PATIENT
  Sex: Male

DRUGS (3)
  1. TYLENOL [Suspect]
  2. TYLENOL [Suspect]
     Indication: DRUG USE FOR UNKNOWN INDICATION
  3. UNSPECIFIED MEDICATIONS [Suspect]
     Indication: DRUG USE FOR UNKNOWN INDICATION

REACTIONS (5)
  - BLOOD DISORDER [None]
  - DRUG HYPERSENSITIVITY [None]
  - EPIDERMOLYSIS BULLOSA [None]
  - HYPERTHERMIA [None]
  - TUBULOINTERSTITIAL NEPHRITIS [None]
